FAERS Safety Report 16193874 (Version 1)
Quarter: 2019Q2

REPORT INFORMATION
  Report Type: Spontaneous
  Country: US (occurrence: US)
  Receive Date: 20190413
  Receipt Date: 20190413
  Transmission Date: 20190711
  Serious: No
  Sender: FDA-Public Use
  Company Number: US-009507513-1904USA005139

PATIENT
  Age: 18 Year
  Sex: Female
  Weight: 77.11 kg

DRUGS (1)
  1. NEXPLANON [Suspect]
     Active Substance: ETONOGESTREL
     Indication: MENSTRUAL CYCLE MANAGEMENT
     Dosage: 1 DOSAGE FORM, FOR 3 YEARS, ROUTE : IMPLANT, LEFT ARM
     Route: 059
     Dates: start: 20171218

REACTIONS (3)
  - Peripheral swelling [Not Recovered/Not Resolved]
  - Weight increased [Not Recovered/Not Resolved]
  - Implant site rash [Not Recovered/Not Resolved]

NARRATIVE: CASE EVENT DATE: 201810
